FAERS Safety Report 4404824-6 (Version None)
Quarter: 2004Q2

REPORT INFORMATION
  Report Type: 
  Country: None (occurrence: None)
  Receive Date: 20040621
  Receipt Date: 20040319
  Transmission Date: 20050107
  Serious: No
  Sender: FDA-Public Use
  Company Number: A-US2004-05477

PATIENT
  Age: 75 Year
  Sex: Female

DRUGS (4)
  1. TRACLEER [Suspect]
     Indication: PULMONARY HYPERTENSION
     Dosage: 625 MG, BID, ORAL
     Route: 048
     Dates: start: 20040312
  2. ATACAND (CANDESARAN CILEXETIL) [Concomitant]
  3. DOXAZOSIN (DOXAZOSIN) [Concomitant]
  4. SYNTHROID [Concomitant]

REACTIONS (4)
  - DRY MOUTH [None]
  - DYSGEUSIA [None]
  - NASAL CONGESTION [None]
  - OEDEMA PERIPHERAL [None]
